FAERS Safety Report 4289819-8 (Version None)
Quarter: 2004Q1

REPORT INFORMATION
  Report Type: 
  Country: None (occurrence: None)
  Receive Date: 20040209
  Receipt Date: 20021118
  Transmission Date: 20041129
  Serious: Yes (Life-Threatening, Hospitalization, Disabling, Other)
  Sender: FDA-Public Use
  Company Number: WAES 0211USA01885

PATIENT
  Age: 70 Year
  Sex: Male
  Weight: 107.5025 kg

DRUGS (8)
  1. VIOXX [Suspect]
     Indication: NEOPLASM PROPHYLAXIS
     Dosage: 25 MG/DAILY/PO
     Route: 048
     Dates: start: 20000919, end: 20020725
  2. ACETAMINOPHEN [Suspect]
     Indication: PROPHYLAXIS
     Dosage: 325 MG/PRN/PO
     Route: 048
     Dates: start: 20000728, end: 20020725
  3. ZOCOR [Concomitant]
  4. ATENOLOL [Concomitant]
  5. LANSOPRAZOLE [Concomitant]
  6. LOSARTAN POTASSIUM [Concomitant]
  7. MECLIZINE [Concomitant]
  8. TERAZOSIN HYDROCHLORIDE [Concomitant]

REACTIONS (14)
  - ADENOCARCINOMA [None]
  - APHAGIA [None]
  - ASTHENIA [None]
  - CARCINOMA [None]
  - CEREBROVASCULAR ACCIDENT [None]
  - CHEST PAIN [None]
  - FACE OEDEMA [None]
  - HEMIPARESIS [None]
  - LARYNGEAL OEDEMA [None]
  - LOCAL SWELLING [None]
  - MYOCARDIAL INFARCTION [None]
  - OROPHARYNGEAL SWELLING [None]
  - PNEUMONIA [None]
  - SPEECH DISORDER [None]
